FAERS Safety Report 9442708 (Version 1)
Quarter: 2013Q3

REPORT INFORMATION
  Report Type: Spontaneous
  Country: ES (occurrence: ES)
  Receive Date: 20130806
  Receipt Date: 20130806
  Transmission Date: 20140515
  Serious: Yes (Other)
  Sender: FDA-Public Use
  Company Number: PHHY2013ES081614

PATIENT
  Age: 73 Year
  Sex: Male

DRUGS (2)
  1. SIMVASTATIN [Suspect]
     Indication: HYPERCHOLESTEROLAEMIA
     Dosage: 10 MG, QD
  2. SIMVASTATIN [Suspect]
     Dosage: 20 MG, QD
     Dates: start: 201104

REACTIONS (2)
  - Dermatitis [Recovered/Resolved]
  - Eczema [Recovered/Resolved]
